FAERS Safety Report 8602520-2 (Version None)
Quarter: 2012Q3

REPORT INFORMATION
  Report Type: 
  Country: None (occurrence: None)
  Receive Date: 20120817
  Receipt Date: 20120813
  Transmission Date: 20120928
  Serious: No
  Sender: FDA-Public Use
  Company Number: US-B.I. PHARMACEUTICALS,INC./RIDGEFIELD-2012-BP-19056BP

PATIENT

DRUGS (1)
  1. PRADAXA [Suspect]
     Route: 048
     Dates: end: 20120101

REACTIONS (1)
  - DIZZINESS [None]
